FAERS Safety Report 16546223 (Version 1)
Quarter: 2019Q3

REPORT INFORMATION
  Report Type: Spontaneous
  Country: US (occurrence: US)
  Receive Date: 20190709
  Receipt Date: 20190709
  Transmission Date: 20191004
  Serious: No
  Sender: FDA-Public Use
  Company Number: US-ASTELLAS-2018US046182

PATIENT
  Age: 70 Year
  Sex: Male

DRUGS (1)
  1. MYRBETRIQ [Suspect]
     Active Substance: MIRABEGRON
     Indication: PRODUCT USED FOR UNKNOWN INDICATION
     Route: 065
     Dates: start: 201810

REACTIONS (4)
  - Urinary incontinence [Not Recovered/Not Resolved]
  - Therapeutic product effect incomplete [Unknown]
  - Nasal congestion [Unknown]
  - Oropharyngeal pain [Unknown]
